FAERS Safety Report 9343583 (Version 1)
Quarter: 2013Q2

REPORT INFORMATION
  Report Type: Spontaneous
  Country: FR (occurrence: FR)
  Receive Date: 20130612
  Receipt Date: 20130612
  Transmission Date: 20140414
  Serious: Yes (Hospitalization, Other)
  Sender: FDA-Public Use
  Company Number: FR-ROCHE-1235091

PATIENT
  Age: 64 Year
  Sex: Female
  Weight: 65 kg

DRUGS (14)
  1. PEGASYS [Suspect]
     Indication: HEPATITIS C
     Route: 058
     Dates: start: 20130118, end: 20130514
  2. COPEGUS [Suspect]
     Indication: HEPATITIS C
     Dosage: DAILY
     Route: 048
     Dates: start: 20130118, end: 20130514
  3. VICTRELIS [Interacting]
     Indication: HEPATITIS C
     Route: 048
     Dates: start: 20130118, end: 20130503
  4. LEVOTHYROX [Interacting]
     Indication: HYPOTHYROIDISM
     Dosage: DAILY
     Route: 048
     Dates: start: 2009
  5. VIRAFERONPEG [Concomitant]
  6. REBETOL [Concomitant]
  7. CYNOMEL [Concomitant]
     Route: 065
     Dates: start: 20130408
  8. ESOMEPRAZOLE [Concomitant]
     Route: 065
     Dates: start: 20121002
  9. ACETAMINOPHEN [Concomitant]
  10. LEVOCETIRIZINE [Concomitant]
     Route: 065
     Dates: start: 20130410
  11. HYDROXYZINE [Concomitant]
     Route: 065
     Dates: start: 20130410
  12. LOCOID [Concomitant]
     Route: 065
     Dates: start: 20130410
  13. PARACETAMOL [Concomitant]
     Route: 065
  14. NEORECORMON [Concomitant]
     Route: 065

REACTIONS (4)
  - Toxic skin eruption [Recovering/Resolving]
  - Hypothyroidism [Unknown]
  - Drug interaction [Unknown]
  - Anaemia [Unknown]
